FAERS Safety Report 22350394 (Version 1)
Quarter: 2023Q2

REPORT INFORMATION
  Report Type: Spontaneous
  Country: US (occurrence: None)
  Receive Date: 20230520
  Receipt Date: 20230520
  Transmission Date: 20230722
  Serious: Yes (Other)
  Sender: FDA-Public Use
  Company Number: None

PATIENT
  Age: 40 Year
  Sex: Female
  Weight: 108 kg

DRUGS (5)
  1. SINGULAIR [Suspect]
     Active Substance: MONTELUKAST SODIUM
     Indication: Multiple allergies
     Dosage: FREQUENCY : AT BEDTIME;?
     Route: 048
     Dates: start: 20230417, end: 20230516
  2. SINGULAIR [Suspect]
     Active Substance: MONTELUKAST SODIUM
     Indication: Cough variant asthma
  3. ZYRTEC [Suspect]
     Active Substance: CETIRIZINE HYDROCHLORIDE
  4. ESOMEPRAZOLE [Concomitant]
     Active Substance: ESOMEPRAZOLE
  5. VITAMINS [Concomitant]
     Active Substance: VITAMINS

REACTIONS (11)
  - Anxiety [None]
  - Intrusive thoughts [None]
  - Influenza like illness [None]
  - Nausea [None]
  - Vomiting [None]
  - Migraine with aura [None]
  - Withdrawal syndrome [None]
  - Fatigue [None]
  - Thinking abnormal [None]
  - Fear [None]
  - Panic reaction [None]

NARRATIVE: CASE EVENT DATE: 20230517
